FAERS Safety Report 6956983-9 (Version None)
Quarter: 2010Q3

REPORT INFORMATION
  Report Type: 
  Country: None (occurrence: None)
  Receive Date: 20100827
  Receipt Date: 20100827
  Transmission Date: 20110219
  Serious: Yes (Hospitalization)
  Sender: FDA-Public Use
  Company Number: None

PATIENT
  Age: 31 Year
  Sex: Male

DRUGS (1)
  1. TRAMADOL HCL [Suspect]
     Indication: PAIN
     Dosage: 50-100MG Q4-6HR PRN PO
     Route: 048

REACTIONS (3)
  - CONVULSIVE THRESHOLD LOWERED [None]
  - LOSS OF CONSCIOUSNESS [None]
  - OVERDOSE [None]
